FAERS Safety Report 13321555 (Version 1)
Quarter: 2017Q1

REPORT INFORMATION
  Report Type: Spontaneous
  Country: US (occurrence: US)
  Receive Date: 20170310
  Receipt Date: 20170310
  Transmission Date: 20170428
  Serious: Yes (Hospitalization, Other)
  Sender: FDA-Public Use
  Company Number: US-LUNDBECK-DKLU2027321

PATIENT
  Sex: Male

DRUGS (1)
  1. NORTHERA [Suspect]
     Active Substance: DROXIDOPA
     Indication: PRODUCT USED FOR UNKNOWN INDICATION
     Route: 065

REACTIONS (11)
  - Haemoglobin decreased [Unknown]
  - Neuropathy peripheral [Unknown]
  - Malaise [Unknown]
  - Chest pain [Unknown]
  - Asthenia [Unknown]
  - Diabetes mellitus [Unknown]
  - Muscular weakness [Unknown]
  - Peripheral swelling [Unknown]
  - Blood pressure systolic decreased [Unknown]
  - Drug dose omission [Unknown]
  - Dizziness [Unknown]
